FAERS Safety Report 16492616 (Version 1)
Quarter: 2019Q2

REPORT INFORMATION
  Report Type: Spontaneous
  Country: US (occurrence: US)
  Receive Date: 20190628
  Receipt Date: 20190628
  Transmission Date: 20190711
  Serious: No
  Sender: FDA-Public Use
  Company Number: US-GRANULES INDIA LIMITED-2069752

PATIENT
  Sex: Female

DRUGS (1)
  1. ACETAMINOPHEN RAPID RELEASE [Suspect]
     Active Substance: ACETAMINOPHEN
     Indication: PRODUCT USED FOR UNKNOWN INDICATION
     Route: 065

REACTIONS (3)
  - Vomiting [Unknown]
  - Expired product administered [Unknown]
  - Malaise [Unknown]

NARRATIVE: CASE EVENT DATE: 20190617
